FAERS Safety Report 5207422-X (Version None)
Quarter: 2007Q1

REPORT INFORMATION
  Report Type: 
  Country: None (occurrence: None)
  Receive Date: 20070112
  Receipt Date: 20070108
  Transmission Date: 20070707
  Serious: Yes (Other)
  Sender: FDA-Public Use
  Company Number: US-ROCHE-477587

PATIENT
  Age: 61 Year
  Sex: Female
  Weight: 52.2 kg

DRUGS (10)
  1. BONIVA [Suspect]
     Indication: OSTEOPOROSIS
     Route: 048
     Dates: start: 20060815
  2. EXCEDRIN (MIGRAINE) [Interacting]
     Indication: DRUG USE FOR UNKNOWN INDICATION
     Dosage: REPORTED ^ONE DOSE OF ASPIRIN^
     Route: 048
     Dates: start: 20061223, end: 20061223
  3. CALCIUM [Concomitant]
  4. VASOTEC [Concomitant]
     Route: 048
  5. ATENOLOL [Concomitant]
     Route: 048
  6. CHOLESTYRAMINE [Concomitant]
     Dosage: INDICATION FOR USE REPORTED AS ^BOWEL FUNCTION^.
  7. IMODIUM [Concomitant]
     Dosage: DOSAGE REPORTED AS ^1 DAILY PRN^
  8. VITAMIN D [Concomitant]
  9. IRON [Concomitant]
     Indication: ANAEMIA
  10. MULTIVITAMIN NOS [Concomitant]

REACTIONS (2)
  - DRUG INTERACTION [None]
  - ENTEROCOLITIS HAEMORRHAGIC [None]
